FAERS Safety Report 4479834-3 (Version None)
Quarter: 2004Q4

REPORT INFORMATION
  Report Type: 
  Country: None (occurrence: None)
  Receive Date: 20041020
  Receipt Date: 20041013
  Transmission Date: 20050328
  Serious: Yes (Hospitalization)
  Sender: FDA-Public Use
  Company Number: FR-BRISTOL-MYERS SQUIBB COMPANY-12731147

PATIENT
  Age: 56 Year
  Sex: Male

DRUGS (8)
  1. SUSTIVA [Suspect]
     Indication: HIV INFECTION
     Route: 048
     Dates: start: 20040701, end: 20040712
  2. VOLTAREN [Suspect]
     Indication: GOUT
     Dosage: STOPPED 14-JUL-2004 RESTARTED 16-JUL-2004
     Route: 048
     Dates: start: 20040711, end: 20040718
  3. NORVIR [Suspect]
     Indication: HIV INFECTION
     Dosage: STOPPED 12-JUL-2004 UNTIL 16-JUL-2004
     Route: 048
  4. AGENERASE [Suspect]
     Indication: HIV INFECTION
     Dosage: STOPPED 12-JUL-2004 UNTIL 16-JUL-2004
     Route: 048
  5. KALETRA [Suspect]
     Indication: HIV INFECTION
     Dosage: STOPPED 12-JUL-2004 UNTIL 16-JUL-2004
     Route: 048
  6. VIREAD [Suspect]
     Indication: HIV INFECTION
     Dosage: STOPPED 12-JUL-2004 UNTIL 16-JUL-2004
     Route: 048
  7. BACTRIM [Concomitant]
     Dosage: ONGOING FOR MORE THAN 1 YEAR
  8. MOPRAL [Concomitant]
     Indication: GOUT
     Dosage: STOPPED 14-JUL-2004 RESTARTED 16-JUL-2004 TO 18-JUL-2004, ONGOING SINCE END OF JUL-2004
     Dates: start: 20040711

REACTIONS (5)
  - ACUTE PULMONARY OEDEMA [None]
  - RASH [None]
  - RENAL FAILURE ACUTE [None]
  - RENAL TUBULAR DISORDER [None]
  - RENAL TUBULAR NECROSIS [None]
